FAERS Safety Report 4263916-5 (Version None)
Quarter: 2004Q1

REPORT INFORMATION
  Report Type: 
  Country: None (occurrence: None)
  Receive Date: 20040102
  Receipt Date: 20031217
  Transmission Date: 20041129
  Serious: Yes (Hospitalization)
  Sender: FDA-Public Use
  Company Number: DE_031212547

PATIENT
  Age: 63 Year
  Sex: Male

DRUGS (6)
  1. GEMZAR [Suspect]
     Indication: PANCREATIC CARCINOMA
     Dosage: 1000 MG/M2 PER INFUSION
     Dates: start: 20030101, end: 20030101
  2. PRAVASTATIN [Concomitant]
  3. KREON (PANCREATIN) [Concomitant]
  4. MOLSIDOMIN (MOLSIDOMINE) [Concomitant]
  5. ALLOPURINOL [Concomitant]
  6. OMEPRAZOLE [Concomitant]

REACTIONS (5)
  - BLOOD CREATINE PHOSPHOKINASE INCREASED [None]
  - C-REACTIVE PROTEIN INCREASED [None]
  - DRUG INTERACTION [None]
  - MYALGIA [None]
  - PYREXIA [None]
